FAERS Safety Report 11755731 (Version 1)
Quarter: 2015Q4

REPORT INFORMATION
  Report Type: Spontaneous
  Country: US (occurrence: US)
  Receive Date: 20151119
  Receipt Date: 20151119
  Transmission Date: 20160304
  Serious: Yes (Other)
  Sender: FDA-Public Use
  Company Number: US-ELI_LILLY_AND_COMPANY-US201511004169

PATIENT
  Age: 54 Year
  Sex: Female

DRUGS (2)
  1. LANTUS [Concomitant]
     Active Substance: INSULIN GLARGINE
  2. HUMALOG [Suspect]
     Active Substance: INSULIN LISPRO
     Indication: TYPE 1 DIABETES MELLITUS
     Dosage: UNK, PRN
     Route: 065

REACTIONS (4)
  - Diabetic ketoacidosis [Unknown]
  - Cerebrovascular accident [Recovered/Resolved with Sequelae]
  - Staphylococcal infection [Unknown]
  - Asthenia [Unknown]

NARRATIVE: CASE EVENT DATE: 201410
